FAERS Safety Report 5696740-7 (Version None)
Quarter: 2008Q2

REPORT INFORMATION
  Report Type: 
  Country: None (occurrence: None)
  Receive Date: 20080408
  Receipt Date: 20061128
  Transmission Date: 20081010
  Serious: No
  Sender: FDA-Public Use
  Company Number: US-BAYER-US-2006-028314

PATIENT
  Age: 35 Year
  Sex: Female
  Weight: 61 kg

DRUGS (9)
  1. YASMIN [Suspect]
     Indication: ORAL CONTRACEPTION
     Route: 048
     Dates: start: 20050201
  2. ALLEGRA [Concomitant]
     Indication: SEASONAL ALLERGY
  3. ADVAIR HFA [Concomitant]
     Indication: SEASONAL ALLERGY
  4. ALBUTEROL [Concomitant]
     Indication: SEASONAL ALLERGY
  5. NEXIUM [Concomitant]
     Indication: GASTROOESOPHAGEAL REFLUX DISEASE
  6. BENTYL [Concomitant]
     Indication: IRRITABLE BOWEL SYNDROME
  7. LEXAPRO [Concomitant]
     Indication: DEPRESSION
     Dates: start: 20050101
  8. VALTREX [Concomitant]
     Indication: HERPES SIMPLEX
     Dates: start: 19990101
  9. VITAMINS [Concomitant]

REACTIONS (1)
  - BLOOD POTASSIUM INCREASED [None]
